FAERS Safety Report 16065384 (Version 1)
Quarter: 2019Q1

REPORT INFORMATION
  Report Type: Spontaneous
  Country: JP (occurrence: JP)
  Receive Date: 20190313
  Receipt Date: 20190313
  Transmission Date: 20190418
  Serious: Yes (Other)
  Sender: FDA-Public Use
  Company Number: JP-GLAXOSMITHKLINE-JP2019JPN043997

PATIENT
  Age: 88 Year
  Sex: Male

DRUGS (1)
  1. ZOVIRAX [Suspect]
     Active Substance: ACYCLOVIR
     Dosage: 700 MG PER DAY, QID
     Route: 048

REACTIONS (2)
  - Altered state of consciousness [Unknown]
  - Product use issue [Unknown]
